FAERS Safety Report 23266577 (Version 3)
Quarter: 2023Q4

REPORT INFORMATION
  Report Type: Spontaneous
  Country: GR (occurrence: GR)
  Receive Date: 20231206
  Receipt Date: 20231213
  Transmission Date: 20240110
  Serious: Yes (Other)
  Sender: FDA-Public Use
  Company Number: GR-UCBSA-2023057251

PATIENT
  Age: 12 Year
  Sex: Female

DRUGS (2)
  1. LEVETIRACETAM [Suspect]
     Active Substance: LEVETIRACETAM
     Indication: Epilepsy
     Dosage: 30 MILLIGRAM/KILOGRAM
     Dates: start: 202211
  2. LEVETIRACETAM [Suspect]
     Active Substance: LEVETIRACETAM
     Indication: Off label use
     Dosage: 40 MILLIGRAM/KILOGRAM

REACTIONS (10)
  - Syncope [Unknown]
  - Partial seizures [Unknown]
  - Panic attack [Unknown]
  - Anxiety [Unknown]
  - Self esteem decreased [Unknown]
  - Oppositional defiant disorder [Unknown]
  - Anger [Unknown]
  - Sleep disorder [Unknown]
  - Stress [Unknown]
  - Off label use [Unknown]

NARRATIVE: CASE EVENT DATE: 20221101
